FAERS Safety Report 8589779-5 (Version None)
Quarter: 2012Q3

REPORT INFORMATION
  Report Type: 
  Country: None (occurrence: None)
  Receive Date: 20120813
  Receipt Date: 20120804
  Transmission Date: 20120928
  Serious: Yes (Other)
  Sender: FDA-Public Use
  Company Number: FR-ASTRAZENECA-2012SE55923

PATIENT
  Age: 79 Year
  Sex: Female

DRUGS (3)
  1. ARIMIDEX [Suspect]
     Indication: BREAST CANCER
     Route: 048
     Dates: start: 20090101, end: 20120614
  2. ANTIDIABETIC [Concomitant]
     Route: 048
  3. ACETAMINOPHEN [Concomitant]

REACTIONS (2)
  - DISEASE PROGRESSION [None]
  - SKIN LESION [None]
